FAERS Safety Report 20542806 (Version 2)
Quarter: 2022Q2

REPORT INFORMATION
  Report Type: Spontaneous
  Country: PL (occurrence: PL)
  Receive Date: 20220302
  Receipt Date: 20220506
  Transmission Date: 20220721
  Serious: Yes (Life-Threatening, Hospitalization, Other)
  Sender: FDA-Public Use
  Company Number: PL-CELGENE-POL-20211205586

PATIENT
  Age: 73 Year
  Sex: Male

DRUGS (29)
  1. VENETOCLAX [Suspect]
     Active Substance: VENETOCLAX
     Indication: Acute myeloid leukaemia
     Dosage: UNKNOWN
     Route: 048
     Dates: start: 20210809, end: 20210809
  2. VENETOCLAX [Suspect]
     Active Substance: VENETOCLAX
     Dosage: UNKNOWN
     Route: 048
     Dates: start: 20210810, end: 20210812
  3. AZACITIDINE [Suspect]
     Active Substance: AZACITIDINE
     Indication: Acute myeloid leukaemia
     Dosage: UNKNOWN
     Route: 058
     Dates: start: 20210809
  4. PEVONEDISTAT [Suspect]
     Active Substance: PEVONEDISTAT
     Indication: Product used for unknown indication
     Route: 048
     Dates: start: 20210809, end: 2021
  5. RUTIN [Concomitant]
     Active Substance: RUTIN
     Indication: Haemorrhage prophylaxis
     Dosage: UNKNOWN
     Route: 065
     Dates: start: 20210908, end: 20211109
  6. BISOPROLOL [Concomitant]
     Active Substance: BISOPROLOL
     Indication: Hypertension
     Dosage: UNKNOWN
     Route: 065
     Dates: start: 20100101
  7. BENSERAZIDE [Concomitant]
     Active Substance: BENSERAZIDE
     Indication: Parkinson^s disease
     Dosage: UNKNOWN
     Route: 065
     Dates: start: 20210101
  8. HYDROXYUREA [Concomitant]
     Active Substance: HYDROXYUREA
     Indication: Hyperleukocytosis
     Dosage: UNKNOWN
     Route: 065
     Dates: start: 20210711, end: 20210809
  9. FLUCONAZOLE [Concomitant]
     Active Substance: FLUCONAZOLE
     Indication: Antifungal prophylaxis
     Route: 065
     Dates: start: 20210712, end: 20210729
  10. FUROSEMIDE SODIUM [Concomitant]
     Active Substance: FUROSEMIDE SODIUM
     Indication: Hypertension
     Dosage: UNKNOWN
     Route: 065
     Dates: start: 20100101
  11. FUROSEMIDE SODIUM [Concomitant]
     Active Substance: FUROSEMIDE SODIUM
     Indication: Prophylaxis
  12. CALCIUM CHLORIDE [Concomitant]
     Active Substance: CALCIUM CHLORIDE
     Indication: Hypocalcaemia
     Route: 065
     Dates: start: 20210721, end: 20210729
  13. TRAMADOL [Concomitant]
     Active Substance: TRAMADOL
     Indication: Back pain
     Dosage: UNKNOWN
     Route: 065
     Dates: start: 20210101
  14. SULFAMETHOXAZOLE\TRIMETHOPRIM [Concomitant]
     Active Substance: SULFAMETHOXAZOLE\TRIMETHOPRIM
     Indication: Prophylaxis
     Dosage: UNKNOWN
     Route: 048
     Dates: start: 20210702
  15. SULFAMETHOXAZOLE\TRIMETHOPRIM [Concomitant]
     Active Substance: SULFAMETHOXAZOLE\TRIMETHOPRIM
     Dosage: UNKNOWN
     Route: 048
     Dates: start: 20210712, end: 20210807
  16. LEVODOPA [Concomitant]
     Active Substance: LEVODOPA
     Indication: Parkinson^s disease
     Dosage: UNKNOWN
     Route: 065
     Dates: start: 20210101
  17. OMEGA-3 FATTY ACIDS [Concomitant]
     Active Substance: OMEGA-3 FATTY ACIDS
     Indication: Prophylaxis
     Route: 065
     Dates: start: 20210711, end: 20210729
  18. POTASSIUM CHLORIDE [Concomitant]
     Active Substance: POTASSIUM CHLORIDE
     Indication: Prophylaxis
     Route: 065
     Dates: start: 20210711, end: 20210729
  19. PERINDOPRIL [Concomitant]
     Active Substance: PERINDOPRIL
     Indication: Hypertension
     Dosage: UNKNOWN
     Route: 065
     Dates: start: 20100101
  20. ACYCLOVIR [Concomitant]
     Active Substance: ACYCLOVIR
     Indication: Prophylaxis
     Dosage: UNKNOWN
     Route: 065
     Dates: start: 20210711
  21. FORMOTEROL [Concomitant]
     Active Substance: FORMOTEROL
     Indication: Asthma
     Dosage: UNKNOWN
     Route: 065
     Dates: start: 20210101
  22. TAMSULOSIN [Concomitant]
     Active Substance: TAMSULOSIN
     Indication: Benign prostatic hyperplasia
     Dosage: UNKNOWN
     Route: 065
     Dates: start: 20210101
  23. CIPROFLOXACIN [Concomitant]
     Active Substance: CIPROFLOXACIN
     Indication: Infection prophylaxis
     Route: 065
     Dates: start: 20210715, end: 20210729
  24. LACTULOSE [Concomitant]
     Active Substance: LACTULOSE
     Indication: Constipation
     Dosage: UNKNOWN
     Route: 065
     Dates: start: 20210716, end: 20210729
  25. LACTULOSE [Concomitant]
     Active Substance: LACTULOSE
     Dosage: UNKNOWN
     Route: 065
     Dates: start: 20210717, end: 20210808
  26. NICERGOLINE [Concomitant]
     Active Substance: NICERGOLINE
     Indication: Dementia
     Dosage: UNKNOWN
     Route: 065
     Dates: start: 20210101
  27. CERUTIN [Concomitant]
     Indication: Haemorrhage prophylaxis
     Dosage: UNKNOWN
     Route: 065
     Dates: start: 20210908, end: 20211109
  28. ENOXAPARIN [Concomitant]
     Active Substance: ENOXAPARIN
     Indication: Thrombosis prophylaxis
     Dosage: UNKNOWN
     Route: 065
     Dates: start: 20210711, end: 20210816
  29. OMEPRAZOLE [Concomitant]
     Active Substance: OMEPRAZOLE
     Indication: Dyspepsia
     Dosage: UNKNOWN
     Route: 065
     Dates: start: 20210712

REACTIONS (2)
  - Acute kidney injury [Recovered/Resolved]
  - Tumour lysis syndrome [Recovered/Resolved]

NARRATIVE: CASE EVENT DATE: 20210809
